FAERS Safety Report 17279318 (Version 7)
Quarter: 2021Q2

REPORT INFORMATION
  Report Type: Spontaneous
  Country: US (occurrence: US)
  Receive Date: 20200116
  Receipt Date: 20210525
  Transmission Date: 20210716
  Serious: Yes (Hospitalization, Other)
  Sender: FDA-Public Use
  Company Number: US-PFIZER INC-2019526682

PATIENT
  Age: 47 Year
  Sex: Female
  Weight: 40.81 kg

DRUGS (18)
  1. XANAX [Suspect]
     Active Substance: ALPRAZOLAM
     Indication: FEAR
     Dosage: 8 MG, 4X/DAY
     Dates: start: 199410
  2. OXYCODONE [Concomitant]
     Active Substance: OXYCODONE
     Indication: PAIN
     Dosage: UNK
     Dates: start: 2011
  3. OXYCODONE [Concomitant]
     Active Substance: OXYCODONE
     Indication: ACCIDENT AT WORK
     Dosage: UNK
     Dates: start: 201801
  4. XANAX [Suspect]
     Active Substance: ALPRAZOLAM
     Dosage: 0.5 MG, 2X/DAY
  5. BUPRENORPHINE. [Concomitant]
     Active Substance: BUPRENORPHINE
     Dosage: 8 MG TINY, UNK
     Dates: start: 201908
  6. BUPRENORPHINE. [Concomitant]
     Active Substance: BUPRENORPHINE
     Indication: PAIN
     Dosage: 2 MG, DAILY
     Dates: start: 20190507
  7. ASPIRIN [ACETYLSALICYLIC ACID] [Concomitant]
     Active Substance: ASPIRIN
     Dosage: UNK
  8. XANAX [Suspect]
     Active Substance: ALPRAZOLAM
     Indication: ANXIETY
     Dosage: 2 MG, 2X/DAY
  9. XANAX [Suspect]
     Active Substance: ALPRAZOLAM
     Dosage: 1 MG, 3X/DAY
  10. XANAX [Suspect]
     Active Substance: ALPRAZOLAM
     Dosage: 3 MG, 3X/DAY
  11. XANAX [Suspect]
     Active Substance: ALPRAZOLAM
     Indication: PANIC ATTACK
     Dosage: 2 MG, 4X/DAY
     Dates: start: 1993
  12. XANAX [Suspect]
     Active Substance: ALPRAZOLAM
     Dosage: 8 MG, DAILY (8 MG DAILY = 4 AT 2 MG)
  13. OXYCODONE [Concomitant]
     Active Substance: OXYCODONE
     Indication: SPINAL CORD DISORDER
     Dosage: 10 MG, EACH WERE TAKEN AT INTERVAL TIME, NOT TOGETHER
     Dates: start: 200609
  14. XANAX [Suspect]
     Active Substance: ALPRAZOLAM
     Dosage: 3 MG, DAILY
  15. ATIVAN [Concomitant]
     Active Substance: LORAZEPAM
     Dosage: 30 1 MG
  16. XANAX [Suspect]
     Active Substance: ALPRAZOLAM
     Dosage: 1 MG, 2X/DAY
  17. XANAX [Suspect]
     Active Substance: ALPRAZOLAM
     Dosage: 6 MG, UNK
  18. MOTRIN [Concomitant]
     Active Substance: IBUPROFEN
     Dosage: UNK

REACTIONS (27)
  - Overdose [Unknown]
  - Drug dependence [Not Recovered/Not Resolved]
  - Vaginal infection [Not Recovered/Not Resolved]
  - Dyspnoea [Not Recovered/Not Resolved]
  - Tremor [Unknown]
  - Procedural pain [Unknown]
  - Herpes zoster [Not Recovered/Not Resolved]
  - Pain [Not Recovered/Not Resolved]
  - Fatigue [Unknown]
  - Pneumonia [Recovered/Resolved]
  - Drug ineffective [Not Recovered/Not Resolved]
  - Suicidal ideation [Not Recovered/Not Resolved]
  - Emotional disorder [Not Recovered/Not Resolved]
  - Cardiac arrest [Unknown]
  - Muscle spasms [Unknown]
  - Palpitations [Not Recovered/Not Resolved]
  - Loss of personal independence in daily activities [Not Recovered/Not Resolved]
  - Prescription drug used without a prescription [Unknown]
  - General physical health deterioration [Unknown]
  - Chronic obstructive pulmonary disease [Recovered/Resolved]
  - Encephalopathy [Recovered/Resolved]
  - Withdrawal syndrome [Not Recovered/Not Resolved]
  - Malnutrition [Unknown]
  - Stress [Unknown]
  - Intentional product use issue [Unknown]
  - Weight decreased [Not Recovered/Not Resolved]
  - Bronchitis [Unknown]

NARRATIVE: CASE EVENT DATE: 1993
